FAERS Safety Report 10022682 (Version 2)
Quarter: 2014Q2

REPORT INFORMATION
  Report Type: Spontaneous
  Country: JP (occurrence: JP)
  Receive Date: 20140319
  Receipt Date: 20140402
  Transmission Date: 20141212
  Serious: Yes (Other)
  Sender: FDA-Public Use
  Company Number: JP-PFIZER INC-2014076881

PATIENT
  Age: 58 Year
  Sex: Male
  Weight: 62 kg

DRUGS (4)
  1. LYRICA [Suspect]
     Dosage: 75 MG, 1X/DAY (BEFORE BEDTIME)
     Route: 048
     Dates: start: 20140308
  2. LOXONIN [Concomitant]
     Indication: BACK PAIN
     Dosage: UNK
     Route: 048
     Dates: start: 20140308, end: 20140325
  3. MUCOSTA [Concomitant]
     Indication: BACK PAIN
     Dosage: UNK
     Route: 048
     Dates: start: 20140308, end: 20140325
  4. RINLAXER [Concomitant]
     Indication: BACK PAIN
     Dosage: UNK
     Dates: start: 20140308, end: 20140325

REACTIONS (1)
  - Retinal haemorrhage [Not Recovered/Not Resolved]
